FAERS Safety Report 15613251 (Version 1)
Quarter: 2018Q4

REPORT INFORMATION
  Report Type: Spontaneous
  Country: FR (occurrence: FR)
  Receive Date: 20181113
  Receipt Date: 20181113
  Transmission Date: 20190205
  Serious: Yes (Hospitalization)
  Sender: FDA-Public Use
  Company Number: FR-MYLANLABS-2018M1085975

PATIENT
  Age: 69 Year
  Sex: Female
  Weight: 98 kg

DRUGS (2)
  1. VANCOMYCIN [Suspect]
     Active Substance: VANCOMYCIN
     Indication: DEVICE RELATED INFECTION
     Dosage: 3 G, QD
     Route: 042
     Dates: start: 20110829, end: 20110912
  2. RIFADINE                           /00146901/ [Suspect]
     Active Substance: RIFAMPIN
     Indication: DEVICE RELATED INFECTION
     Dosage: 1500 MG, QD (600MG- 0 - 900MG)
     Route: 048
     Dates: start: 20110905, end: 20110912

REACTIONS (1)
  - Toxic skin eruption [Recovered/Resolved]

NARRATIVE: CASE EVENT DATE: 20110908
